FAERS Safety Report 20573437 (Version 1)
Quarter: 2022Q1

REPORT INFORMATION
  Report Type: Spontaneous
  Country: CN (occurrence: None)
  Receive Date: 20220309
  Receipt Date: 20220309
  Transmission Date: 20220423
  Serious: Yes (Hospitalization)
  Sender: FDA-Public Use
  Company Number: 2022A099924

PATIENT
  Age: 58 Year
  Sex: Female

DRUGS (1)
  1. OSIMERTINIB [Suspect]
     Active Substance: OSIMERTINIB
     Indication: Neoplasm
     Route: 048
     Dates: start: 20211130, end: 20220222

REACTIONS (8)
  - Interstitial lung disease [Recovering/Resolving]
  - Erythema [Recovering/Resolving]
  - Lung opacity [Unknown]
  - Chest discomfort [Unknown]
  - Dyspnoea [Unknown]
  - Inflammation [Unknown]
  - Asthma [Recovering/Resolving]
  - Asphyxia [Recovering/Resolving]

NARRATIVE: CASE EVENT DATE: 20220217
